FAERS Safety Report 12634960 (Version 2)
Quarter: 2016Q4

REPORT INFORMATION
  Report Type: Spontaneous
  Country: US (occurrence: US)
  Receive Date: 20160808
  Receipt Date: 20161027
  Transmission Date: 20170207
  Serious: No
  Sender: FDA-Public Use
  Company Number: US-009507513-1607USA008328

PATIENT
  Age: 20 Year
  Sex: Female
  Weight: 60.77 kg

DRUGS (4)
  1. VITAMINS (UNSPECIFIED) [Concomitant]
     Active Substance: VITAMINS
  2. NEXPLANON [Suspect]
     Active Substance: ETONOGESTREL
     Dosage: 1 DF, UNK
     Route: 059
     Dates: end: 20160608
  3. ZOLOFT [Concomitant]
     Active Substance: SERTRALINE HYDROCHLORIDE
     Indication: ANXIETY
     Dosage: 50 MG, TOTAL DAILY DOSE
     Route: 048
     Dates: start: 20160711
  4. NEXPLANON [Suspect]
     Active Substance: ETONOGESTREL
     Indication: CONTRACEPTION
     Dosage: FREQUENCY: 1 IMPLANT EVERY 3 YEARS
     Route: 059
     Dates: start: 20160608

REACTIONS (6)
  - Injury [Unknown]
  - Implant site rash [Recovering/Resolving]
  - Petechiae [Recovering/Resolving]
  - Complication associated with device [Not Recovered/Not Resolved]
  - Implant site erythema [Recovering/Resolving]
  - Vaginal haemorrhage [Recovered/Resolved]

NARRATIVE: CASE EVENT DATE: 2016
